FAERS Safety Report 6501365-7 (Version None)
Quarter: 2009Q4

REPORT INFORMATION
  Report Type: 
  Country: None (occurrence: None)
  Receive Date: 20091215
  Receipt Date: 20091215
  Transmission Date: 20100525
  Serious: Yes (Hospitalization)
  Sender: FDA-Public Use
  Company Number: None

PATIENT
  Sex: Female
  Weight: 83.9154 kg

DRUGS (1)
  1. LISINOPRIL [Suspect]
     Indication: MIGRAINE
     Dosage: 5 MG 1X/DAY PO ONE DOSE
     Route: 048
     Dates: start: 20091201, end: 20091201

REACTIONS (12)
  - ABDOMINAL DISCOMFORT [None]
  - ABDOMINAL PAIN [None]
  - COGNITIVE DISORDER [None]
  - DECREASED APPETITE [None]
  - DIARRHOEA [None]
  - DIZZINESS [None]
  - ERUCTATION [None]
  - MALAISE [None]
  - MOTOR DYSFUNCTION [None]
  - NAUSEA [None]
  - RASH PRURITIC [None]
  - SKIN EXFOLIATION [None]
